FAERS Safety Report 11950297 (Version 1)
Quarter: 2016Q1

REPORT INFORMATION
  Report Type: Spontaneous
  Country: US (occurrence: None)
  Receive Date: 20160122
  Receipt Date: 20160122
  Transmission Date: 20160526
  Serious: Yes (Hospitalization)
  Sender: FDA-Public Use
  Company Number: None

PATIENT
  Age: 64 Year
  Sex: Female

DRUGS (1)
  1. HARVONI [Suspect]
     Active Substance: LEDIPASVIR\SOFOSBUVIR
     Dosage: STRENGTH: 90-400
     Dates: start: 20151113

REACTIONS (2)
  - Blood pressure systolic increased [None]
  - Hypertension [None]

NARRATIVE: CASE EVENT DATE: 20151222
